FAERS Safety Report 11438327 (Version 1)
Quarter: 2015Q3

REPORT INFORMATION
  Report Type: Spontaneous
  Country: US (occurrence: US)
  Receive Date: 20150901
  Receipt Date: 20150901
  Transmission Date: 20151125
  Serious: No
  Sender: FDA-Public Use
  Company Number: US-ROCHE-1105866

PATIENT
  Age: 55 Year
  Sex: Female

DRUGS (2)
  1. RIBASPHERE RIBAPAK [Suspect]
     Active Substance: RIBAVIRIN
     Indication: HEPATITIS C
     Route: 048
     Dates: start: 20120713
  2. PEGASYS [Suspect]
     Active Substance: PEGINTERFERON ALFA-2A
     Indication: HEPATITIS C
     Route: 058
     Dates: start: 20120713

REACTIONS (12)
  - Lymph node pain [Unknown]
  - Stress [Unknown]
  - Influenza like illness [Unknown]
  - Fatigue [Unknown]
  - Back pain [Unknown]
  - Lymphadenopathy [Unknown]
  - Product physical issue [Unknown]
  - Dizziness [Unknown]
  - White blood cell count decreased [Unknown]
  - Anaemia [Unknown]
  - Headache [Unknown]
  - Chills [Unknown]

NARRATIVE: CASE EVENT DATE: 20120930
